FAERS Safety Report 4396568-4 (Version None)
Quarter: 2004Q2

REPORT INFORMATION
  Report Type: 
  Country: None (occurrence: None)
  Receive Date: 20040524
  Receipt Date: 20030718
  Transmission Date: 20050107
  Serious: Yes (Hospitalization)
  Sender: FDA-Public Use
  Company Number: WSDF 351

PATIENT
  Age: 12 Year
  Sex: Female
  Weight: 58.9676 kg

DRUGS (2)
  1. WINRHO SDF [Suspect]
     Indication: IDIOPATHIC THROMBOCYTOPENIC PURPURA
     Dosage: 55.9 MCG/KG, IV, ONCE
     Route: 042
     Dates: start: 20030711
  2. WINRHO SDF [Suspect]

REACTIONS (5)
  - BODY TEMPERATURE INCREASED [None]
  - HEADACHE [None]
  - HYPOTENSION [None]
  - NAUSEA [None]
  - TACHYCARDIA [None]
